FAERS Safety Report 12182078 (Version 1)
Quarter: 2016Q1

REPORT INFORMATION
  Report Type: Spontaneous
  Country: GB (occurrence: GB)
  Receive Date: 20160315
  Receipt Date: 20160315
  Transmission Date: 20160526
  Serious: Yes (Other)
  Sender: FDA-Public Use
  Company Number: GB-AMGEN-GBRSP2016030873

PATIENT
  Age: 56 Year
  Sex: Male

DRUGS (2)
  1. ENBREL [Suspect]
     Active Substance: ETANERCEPT
     Indication: RHEUMATOID ARTHRITIS
     Dosage: 50 MG, WEEKLY
     Route: 058
     Dates: start: 20150323
  2. LEFLUNOMIDE. [Concomitant]
     Active Substance: LEFLUNOMIDE
     Dosage: 10 MG, 1X/DAY (OD)

REACTIONS (6)
  - Condition aggravated [Unknown]
  - Rheumatoid arthritis [Unknown]
  - Gingival pain [Unknown]
  - Gingival bleeding [Unknown]
  - Increased upper airway secretion [Unknown]
  - Injection site pain [Unknown]

NARRATIVE: CASE EVENT DATE: 201602
